FAERS Safety Report 11595778 (Version 1)
Quarter: 2015Q4

REPORT INFORMATION
  Report Type: Spontaneous
  Country: CA (occurrence: CA)
  Receive Date: 20151006
  Receipt Date: 20151006
  Transmission Date: 20160304
  Serious: Yes (Death)
  Sender: FDA-Public Use
  Company Number: CA-009507513-1510CAN001273

PATIENT
  Age: 49 Year
  Sex: Female
  Weight: 58 kg

DRUGS (1)
  1. KEYTRUDA [Suspect]
     Active Substance: PEMBROLIZUMAB
     Indication: MALIGNANT MELANOMA
     Dosage: 116 MG (2 MG/KG), Q3W
     Route: 042
     Dates: start: 20150520, end: 20150701

REACTIONS (2)
  - Death [Fatal]
  - Drug effect decreased [Unknown]

NARRATIVE: CASE EVENT DATE: 2015
